FAERS Safety Report 9813062 (Version 1)
Quarter: 2014Q1

REPORT INFORMATION
  Report Type: Spontaneous
  Country: GB (occurrence: None)
  Receive Date: 20140108
  Receipt Date: 20140108
  Transmission Date: 20141002
  Serious: Yes (Other)
  Sender: FDA-Public Use
  Company Number: 2013156232

PATIENT
  Age: 45 Year
  Sex: Female
  Weight: 93 kg

DRUGS (11)
  1. FRAGMIN (DALTEPARIN SODIUM) SOLUTION FOR INJECTION [Suspect]
     Indication: ANTIPHOSPHOLIPID SYNDROME
     Dosage: 15000 IU, 1X/DAY, SUBCUTANEOUS
     Dates: start: 201002
  2. METHOTREXATE (METHOTREXATE) [Concomitant]
  3. HYDROXYCHLOROQUINE (HYDROXYCHLOROQUINE) [Concomitant]
  4. PREDNISOLONE (PREDNISOONE) [Concomitant]
  5. NICORANDIL (NICORANDIL) [Concomitant]
  6. FLECAINIDE (FLECAINIDE) [Concomitant]
  7. VITAMIN D (ERGOCALCIFEROL) [Concomitant]
  8. OMEPRAZOLE (OMEPRAZOLE) [Concomitant]
  9. ASPIRIN (ACETYLSALICYLIC ACID) [Concomitant]
  10. NORETHISTERONE (NORETHISTERONE) [Concomitant]
  11. HUMIRA (ADALIMUMAB) OPEN LABEL [Concomitant]

REACTIONS (10)
  - Amnesia [None]
  - Disturbance in attention [None]
  - Dysarthria [None]
  - Headache [None]
  - Photopsia [None]
  - Drooling [None]
  - Hypoaesthesia [None]
  - Speech disorder [None]
  - Facial paresis [None]
  - Drug ineffective [None]
